FAERS Safety Report 19323899 (Version 2)
Quarter: 2021Q3

REPORT INFORMATION
  Report Type: Other
  Country: NL (occurrence: NL)
  Receive Date: 20210528
  Receipt Date: 20210708
  Transmission Date: 20211014
  Serious: Yes (Life-Threatening, Hospitalization)
  Sender: FDA-Public Use
  Company Number: NL-ASPP-GLO2021NL003989

PATIENT

DRUGS (13)
  1. LENALIDOMIDE [Suspect]
     Active Substance: LENALIDOMIDE
     Dosage: 280 DAILY DOSE
     Route: 048
     Dates: start: 20210408, end: 20210421
  2. CARFILZOMIB [Suspect]
     Active Substance: CARFILZOMIB
     Indication: PLASMA CELL MYELOMA
     Dosage: 342 DAILY DOSE (INJECTION)
     Route: 065
     Dates: start: 20210401, end: 20210415
  3. OXAZEPAM. [Concomitant]
     Active Substance: OXAZEPAM
     Indication: SLEEP APNOEA SYNDROME
     Dosage: UNK
     Route: 065
  4. LENALIDOMIDE [Suspect]
     Active Substance: LENALIDOMIDE
     Dosage: 280 DAILY DOSE
     Route: 048
     Dates: start: 20210518
  5. DEXAMETHASONE. [Suspect]
     Active Substance: DEXAMETHASONE
     Indication: PLASMA CELL MYELOMA
     Dosage: 40 MG
     Route: 065
     Dates: start: 20210304, end: 20210311
  6. LENALIDOMIDE [Suspect]
     Active Substance: LENALIDOMIDE
     Indication: PLASMA CELL MYELOMA
     Dosage: 25 MG
     Route: 048
     Dates: start: 20210304, end: 20210311
  7. ISATUXIMAB [Suspect]
     Active Substance: ISATUXIMAB
     Indication: PLASMA CELL MYELOMA
     Dosage: 1600 DAILY DOSE
     Route: 065
     Dates: start: 20210401, end: 20210415
  8. DEXAMETHASONE. [Suspect]
     Active Substance: DEXAMETHASONE
     Dosage: 40 DAILY DOSE
     Route: 065
     Dates: start: 20210518
  9. DEXAMETHASONE. [Suspect]
     Active Substance: DEXAMETHASONE
     Dosage: 40 DAILY DOSE
     Route: 065
     Dates: start: 20210401, end: 20210401
  10. ISATUXIMAB [Suspect]
     Active Substance: ISATUXIMAB
     Dosage: 1600 DAILY DOSE
     Route: 065
     Dates: start: 20210518
  11. PREDNISONE. [Suspect]
     Active Substance: PREDNISONE
     Indication: PROPHYLAXIS
     Dosage: UNK
     Route: 065
     Dates: start: 20210408, end: 20210414
  12. CARFILZOMIB [Suspect]
     Active Substance: CARFILZOMIB
     Dosage: 342 DAILY DOSE (INJECTION)
     Route: 065
     Dates: start: 20210518
  13. OXAZEPAM. [Concomitant]
     Active Substance: OXAZEPAM
     Indication: DEPRESSION
     Dosage: UNK
     Route: 065
     Dates: start: 20210222, end: 20210420

REACTIONS (1)
  - Depression [Recovered/Resolved with Sequelae]

NARRATIVE: CASE EVENT DATE: 20210414
